FAERS Safety Report 9045426 (Version 1)
Quarter: 2013Q1

REPORT INFORMATION
  Report Type: Report from Study
  Country: JP (occurrence: JP)
  Receive Date: 20130131
  Receipt Date: 20130131
  Transmission Date: 20140127
  Serious: Yes (Hospitalization)
  Sender: FDA-Public Use
  Company Number: JP-009507513-2011SP019160

PATIENT
  Age: 18 Year
  Sex: Female
  Weight: 39 kg

DRUGS (80)
  1. TEMOZOLOMIDE [Suspect]
     Indication: ANAPLASTIC ASTROCYTOMA
     Dosage: 150 MG/M2, QD
     Route: 048
     Dates: start: 20061204, end: 20061208
  2. TEMOZOLOMIDE [Suspect]
     Dosage: 150 MG/M2, QD
     Route: 048
     Dates: start: 20070110, end: 20070114
  3. TEMOZOLOMIDE [Suspect]
     Dosage: 120 MG/M2, QD
     Route: 048
     Dates: start: 20070207, end: 20070211
  4. TEMOZOLOMIDE [Suspect]
     Dosage: 120 MG/M2, QD
     Route: 048
     Dates: start: 20070307, end: 20070311
  5. TEMOZOLOMIDE [Suspect]
     Dosage: 130 MG/M2, QD
     Route: 048
     Dates: start: 20070404, end: 20070408
  6. TEMOZOLOMIDE [Suspect]
     Dosage: 130 MG/M2, QD
     Route: 048
     Dates: start: 20070502, end: 20070506
  7. TEMOZOLOMIDE [Suspect]
     Dosage: 130 MG/M2, QD
     Route: 048
     Dates: start: 20070530, end: 20070603
  8. TEMOZOLOMIDE [Suspect]
     Dosage: 130 MG/M2, QD
     Route: 048
     Dates: start: 20070627, end: 20070701
  9. TEMOZOLOMIDE [Suspect]
     Dosage: 130 MG/M2, QD
     Route: 048
     Dates: start: 20070725, end: 20070729
  10. TEMOZOLOMIDE [Suspect]
     Dosage: 130 MG/M2, QD
     Route: 048
     Dates: start: 20070815, end: 20070819
  11. TEMOZOLOMIDE [Suspect]
     Dosage: 130 MG/M2, QD
     Route: 048
     Dates: start: 20070912, end: 20070916
  12. TEMOZOLOMIDE [Suspect]
     Dosage: 130 MG/M2, QD
     Route: 048
     Dates: start: 20071017, end: 20071021
  13. TEMOZOLOMIDE [Suspect]
     Dosage: 130 MG/M2, QD
     Route: 048
     Dates: start: 20071114, end: 20071118
  14. TEMOZOLOMIDE [Suspect]
     Dosage: 130 MG/M2, QD
     Route: 048
     Dates: start: 20071219, end: 20071223
  15. TEMOZOLOMIDE [Suspect]
     Dosage: 130 MG/M2, QD
     Route: 048
     Dates: start: 20080123, end: 20080127
  16. TEMOZOLOMIDE [Suspect]
     Dosage: 130 MG/M2, QD
     Route: 048
     Dates: start: 20080220, end: 20080224
  17. TEMOZOLOMIDE [Suspect]
     Dosage: 130 MG/M2, QD
     Route: 048
     Dates: start: 20080319, end: 20080323
  18. TEMOZOLOMIDE [Suspect]
     Dosage: 130 MG/M2, QD
     Route: 048
     Dates: start: 20080416, end: 20080420
  19. TEMOZOLOMIDE [Suspect]
     Dosage: 130 MG/M2, QD
     Route: 048
     Dates: start: 20080514, end: 20080518
  20. TEMOZOLOMIDE [Suspect]
     Dosage: 130 MG/M2, QD
     Route: 048
     Dates: start: 20080611, end: 20080615
  21. TEMOZOLOMIDE [Suspect]
     Dosage: 130 MG/M2, QD
     Route: 048
     Dates: start: 20080709, end: 20080713
  22. TEMOZOLOMIDE [Suspect]
     Dosage: 150 MG/M2, QD
     Route: 048
     Dates: start: 20080813, end: 20080817
  23. TEMOZOLOMIDE [Suspect]
     Dosage: 150 MG/M2, QD
     Route: 048
     Dates: start: 20080917, end: 20080921
  24. TEMOZOLOMIDE [Suspect]
     Dosage: 150 MG/M2, QD
     Route: 048
     Dates: start: 20081112, end: 20081116
  25. TEMOZOLOMIDE [Suspect]
     Dosage: 150 MG/M2, QD
     Route: 048
     Dates: start: 20081217, end: 20081221
  26. TEMOZOLOMIDE [Suspect]
     Dosage: 150 MG/M2, QD
     Route: 048
     Dates: start: 20090121, end: 20090125
  27. TEMOZOLOMIDE [Suspect]
     Dosage: 150 MG/M2, QD
     Route: 048
     Dates: start: 20090218, end: 20090222
  28. TEMOZOLOMIDE [Suspect]
     Dosage: 150 MG/M2, QD
     Route: 048
     Dates: start: 20090318, end: 20090322
  29. TEMOZOLOMIDE [Suspect]
     Dosage: 150 MG/M2, QD
     Route: 048
     Dates: start: 20090415, end: 20090419
  30. TEMOZOLOMIDE [Suspect]
     Dosage: 150 MG/M2, QD
     Route: 048
     Dates: start: 20090520, end: 20090524
  31. TEMOZOLOMIDE [Suspect]
     Dosage: 150 MG/M2, QD
     Route: 048
     Dates: start: 20090617, end: 20090621
  32. TEMOZOLOMIDE [Suspect]
     Dosage: 150 MG/M2, QD
     Route: 048
     Dates: start: 20090715, end: 20090719
  33. TEMOZOLOMIDE [Suspect]
     Dosage: 150 MG/M2, QD
     Route: 048
     Dates: start: 20090812, end: 20090816
  34. TEMOZOLOMIDE [Suspect]
     Dosage: 150 MG/M2, QD
     Route: 048
     Dates: start: 20090909, end: 20090913
  35. TEMOZOLOMIDE [Suspect]
     Dosage: 150 MG/M2, QD
     Route: 048
     Dates: start: 20091007, end: 20091011
  36. TEMOZOLOMIDE [Suspect]
     Dosage: 150 MG/M2, QD
     Route: 048
     Dates: start: 20091111, end: 20091115
  37. TEMOZOLOMIDE [Suspect]
     Dosage: 150 MG/M2, QD
     Route: 048
     Dates: start: 20091209, end: 20091213
  38. TEMOZOLOMIDE [Suspect]
     Dosage: 150 MG/M2, QD
     Route: 048
     Dates: start: 20100113, end: 20100117
  39. TEMOZOLOMIDE [Suspect]
     Dosage: 150 MG/M2, QD
     Route: 048
     Dates: start: 20100217, end: 20100221
  40. TEMOZOLOMIDE [Suspect]
     Dosage: 150 MG/M2, QD
     Route: 048
     Dates: start: 20100317, end: 20100321
  41. TEMOZOLOMIDE [Suspect]
     Dosage: 150 MG/M2, QD
     Route: 048
     Dates: start: 20100421, end: 20100425
  42. TEMOZOLOMIDE [Suspect]
     Dosage: 150 MG/M2, QD
     Route: 048
     Dates: start: 20100519, end: 20100523
  43. TEMOZOLOMIDE [Suspect]
     Dosage: 150 MG/M2, QD
     Route: 048
     Dates: start: 20100728, end: 20100801
  44. TEMOZOLOMIDE [Suspect]
     Dosage: 150 MG/M2, QD
     Route: 048
     Dates: start: 20100901, end: 20100905
  45. TEMOZOLOMIDE [Suspect]
     Dosage: 150 MG/M2, QD
     Route: 048
     Dates: start: 20100929, end: 20101003
  46. TEMOZOLOMIDE [Suspect]
     Dosage: 150 MG/M2, QD
     Route: 048
     Dates: start: 20101027, end: 20101031
  47. TEMOZOLOMIDE [Suspect]
     Dosage: 150 MG/M2, QD
     Route: 048
     Dates: start: 20101124, end: 20101128
  48. TEMOZOLOMIDE [Suspect]
     Dosage: 150 MG/M2, QD
     Route: 048
     Dates: start: 20101222, end: 20101226
  49. TEMOZOLOMIDE [Suspect]
     Dosage: 150 MG/M2, QD
     Route: 048
     Dates: start: 20110126, end: 20110130
  50. TEMOZOLOMIDE [Suspect]
     Dosage: 150 MG/M2, QD
     Route: 048
     Dates: start: 20110223, end: 20110227
  51. TEMODAL [Suspect]
     Indication: ANAPLASTIC ASTROCYTOMA
     Dosage: 150 MG/M2, QD
     Route: 048
     Dates: start: 20110406, end: 20110410
  52. TEMODAL [Suspect]
     Dosage: 150 MG/M2, QD
     Route: 048
     Dates: start: 20110511, end: 20110515
  53. TEMODAL [Suspect]
     Dosage: 150 MG/M2, QD
     Route: 048
     Dates: start: 20110606, end: 20110610
  54. TEMODAL [Suspect]
     Dosage: 150 MG/M2, QD
     Route: 048
     Dates: start: 20110706, end: 20110710
  55. TEMODAL [Suspect]
     Dosage: 150 MG/M2, QD
     Route: 048
     Dates: start: 20110810, end: 20110814
  56. TEMODAL [Suspect]
     Dosage: 150 MG/M2, QD
     Route: 048
     Dates: start: 20110921, end: 20110925
  57. TEMODAL [Suspect]
     Dosage: 150 MG/M2, QD
     Route: 048
     Dates: start: 20111019, end: 20111023
  58. TEMODAL [Suspect]
     Dosage: 150 MG/M2, QD
     Route: 048
     Dates: start: 20111214, end: 20111218
  59. TEMODAL [Suspect]
     Dosage: 150 MG/M2, QD
     Route: 048
     Dates: start: 20120131, end: 20120204
  60. TEMODAL [Suspect]
     Dosage: 150 MG/M2, QD
     Route: 048
     Dates: start: 20120229, end: 20120304
  61. TEMODAL [Suspect]
     Dosage: 150 MG/M2, QD
     Route: 048
     Dates: start: 20120328, end: 20120401
  62. TEMODAL [Suspect]
     Dosage: 150 MG/M2, QD
     Route: 048
     Dates: start: 20120425, end: 20120429
  63. TEMODAL [Suspect]
     Dosage: 150 MG/M2, QD
     Route: 048
     Dates: start: 20120620, end: 20120624
  64. TEMODAL [Suspect]
     Dosage: 150 MG/M2, QD
     Route: 048
     Dates: start: 20120718, end: 20120722
  65. TEMODAL [Suspect]
     Dosage: 150 MG/M2, QD
     Route: 048
     Dates: start: 20120815, end: 20120819
  66. TEMODAL [Suspect]
     Dosage: 150 MG/M2, QD
     Route: 048
     Dates: start: 20120919, end: 20120923
  67. TEMODAL [Suspect]
     Dosage: 150 MG/M2, QD
     Route: 048
     Dates: start: 20121010, end: 20121014
  68. TEMODAL [Suspect]
     Dosage: 150 MG/M2, QD
     Route: 048
     Dates: start: 20121114, end: 20121118
  69. BAKTAR [Concomitant]
     Indication: ANTIFUNGAL PROPHYLAXIS
     Dosage: 800 MG, QD
     Route: 048
     Dates: start: 20061211
  70. ALEVIATIN [Concomitant]
     Dosage: UNK
     Route: 048
     Dates: end: 20080221
  71. EXCEGRAN [Concomitant]
     Route: 048
  72. GASTER D [Concomitant]
     Indication: PROPHYLAXIS
     Route: 048
  73. PREDONINE [Concomitant]
     Route: 048
  74. DEPAKENE [Concomitant]
     Dosage: UNK
     Route: 048
     Dates: end: 20091001
  75. THYRADIN [Concomitant]
     Route: 048
  76. KYTRIL [Concomitant]
     Indication: PROPHYLAXIS
     Dosage: UNK
     Route: 048
     Dates: start: 20061204
  77. PREMARIN [Concomitant]
     Indication: PROPHYLAXIS
     Dosage: UNK
     Route: 048
     Dates: start: 20090121
  78. PROVERA [Concomitant]
     Indication: PROPHYLAXIS
     Dosage: UNK
     Route: 048
     Dates: start: 20090121
  79. TEGRETOL [Concomitant]
     Indication: PROPHYLAXIS
     Dosage: UNK
     Route: 048
     Dates: start: 20071221
  80. MYSTAN [Concomitant]
     Indication: PROPHYLAXIS
     Dosage: UNK
     Route: 048
     Dates: start: 20080123

REACTIONS (9)
  - Radiation necrosis [Not Recovered/Not Resolved]
  - Platelet count decreased [Not Recovered/Not Resolved]
  - Lymphocyte count decreased [Not Recovered/Not Resolved]
  - Neutrophil count decreased [Recovered/Resolved]
  - White blood cell count decreased [Recovered/Resolved]
  - Anaemia [Recovered/Resolved]
  - Decreased appetite [Recovering/Resolving]
  - Decreased appetite [Recovering/Resolving]
  - Decreased appetite [Recovering/Resolving]
